FAERS Safety Report 23872061 (Version 2)
Quarter: 2024Q4

REPORT INFORMATION
  Report Type: Report from Study
  Country: US (occurrence: US)
  Receive Date: 20240520
  Receipt Date: 20241009
  Transmission Date: 20250115
  Serious: Yes (Other)
  Sender: ABBVIE
  Company Number: US-ABBVIE-5763309

PATIENT
  Sex: Male

DRUGS (1)
  1. VENCLEXTA [Suspect]
     Active Substance: VENETOCLAX
     Indication: Acute myeloid leukaemia
     Dosage: FORM STRENGHT-100 MG, ?TAKE 4 TABLETS BY MOUTH DAILY FOR 7 DAYS AS DIRECTED BY DOCTOR
     Route: 048

REACTIONS (1)
  - Hospice care [Unknown]
